FAERS Safety Report 4710558-0 (Version None)
Quarter: 2005Q3

REPORT INFORMATION
  Report Type: 
  Country: None (occurrence: None)
  Receive Date: 20050711
  Receipt Date: 20040930
  Transmission Date: 20060218
  Serious: Yes (Death, Other)
  Sender: FDA-Public Use
  Company Number: 2005AP01518

PATIENT
  Age: 32581 Day
  Sex: Male
  Weight: 40 kg

DRUGS (8)
  1. CASODEX [Suspect]
     Indication: PROSTATE CANCER
     Route: 048
     Dates: start: 20040508, end: 20040519
  2. ALLOPURINOL [Suspect]
     Indication: HYPERURICAEMIA
     Route: 048
     Dates: start: 20030301, end: 20040520
  3. PLETAL [Suspect]
     Indication: CEREBRAL INFARCTION
     Route: 048
     Dates: start: 20040501, end: 20040520
  4. LASIX [Concomitant]
     Indication: HYPERTENSION
     Route: 048
     Dates: start: 20030301, end: 20040520
  5. GRAMALIL [Concomitant]
     Indication: CEREBRAL INFARCTION
     Route: 048
     Dates: start: 20040501, end: 20040520
  6. BLOPRESS [Concomitant]
     Indication: HYPERTENSION
     Route: 048
     Dates: start: 20040501, end: 20040520
  7. ARICEPT [Concomitant]
     Indication: DEMENTIA ALZHEIMER'S TYPE
     Route: 048
     Dates: start: 20040501, end: 20040520
  8. EBRANTIL [Concomitant]
     Indication: HYPERTENSION
     Route: 048
     Dates: start: 20040501, end: 20040520

REACTIONS (9)
  - CARDIAC FAILURE [None]
  - CARDIOMEGALY [None]
  - CONDITION AGGRAVATED [None]
  - CORYNEBACTERIUM INFECTION [None]
  - HERPES SIMPLEX [None]
  - INTERSTITIAL LUNG DISEASE [None]
  - PNEUMONIA BACTERIAL [None]
  - RENAL FAILURE CHRONIC [None]
  - RESPIRATORY DISORDER [None]
